FAERS Safety Report 15775993 (Version 1)
Quarter: 2018Q4

REPORT INFORMATION
  Report Type: Spontaneous
  Country: US (occurrence: US)
  Receive Date: 20181231
  Receipt Date: 20181231
  Transmission Date: 20190205
  Serious: Yes (Other)
  Sender: FDA-Public Use
  Company Number: US-TEVA-2018-US-993363

PATIENT
  Sex: Female

DRUGS (1)
  1. COPAXONE [Suspect]
     Active Substance: GLATIRAMER ACETATE
     Route: 065

REACTIONS (6)
  - Hypoaesthesia [Unknown]
  - Fatigue [Unknown]
  - Musculoskeletal disorder [Unknown]
  - Injection site reaction [Unknown]
  - Multiple sclerosis [Unknown]
  - Pain [Unknown]
